FAERS Safety Report 5374014-1 (Version None)
Quarter: 2007Q2

REPORT INFORMATION
  Report Type: 
  Country: None (occurrence: None)
  Receive Date: 20070628
  Receipt Date: 20070619
  Transmission Date: 20071010
  Serious: Yes (Life-Threatening, Hospitalization, Other)
  Sender: FDA-Public Use
  Company Number: US-MERCK-0703USA04273

PATIENT
  Age: 65 Year
  Sex: Male

DRUGS (17)
  1. CANCIDAS [Suspect]
     Indication: EVIDENCE BASED TREATMENT
     Route: 042
     Dates: start: 20070305
  2. CANCIDAS [Suspect]
     Route: 042
     Dates: start: 20070305, end: 20070305
  3. ANTIMICROBIAL (UNSPECIFIED) [Concomitant]
     Route: 065
  4. ALBUTEROL [Concomitant]
     Route: 065
  5. VANCOMYCIN [Concomitant]
     Indication: STAPHYLOCOCCAL INFECTION
     Route: 042
     Dates: start: 20070215
  6. NITROGLYCERIN [Concomitant]
     Route: 065
  7. OXYCODONE [Concomitant]
     Route: 065
  8. COUMADIN [Concomitant]
     Route: 065
  9. CAPTOPRIL MSD [Concomitant]
     Route: 065
  10. CEPHALEXIN [Concomitant]
     Route: 065
  11. ASPIRIN [Concomitant]
     Route: 065
  12. HYDROCORTISONE [Concomitant]
     Route: 042
     Dates: start: 20070317
  13. LEVOFLOXACIN [Concomitant]
     Route: 042
     Dates: start: 20070215, end: 20070319
  14. METOCLOPRAMIDE [Concomitant]
     Route: 065
  15. ADAPIN [Concomitant]
     Route: 065
  16. MORPHINE [Concomitant]
     Route: 065
  17. CEFEPIME [Concomitant]
     Route: 042
     Dates: start: 20070218

REACTIONS (1)
  - ORAL CANDIDIASIS [None]
